FAERS Safety Report 12416145 (Version 1)
Quarter: 2016Q2

REPORT INFORMATION
  Report Type: Spontaneous
  Country: BR (occurrence: BR)
  Receive Date: 20160530
  Receipt Date: 20160530
  Transmission Date: 20160815
  Serious: Yes (Other)
  Sender: FDA-Public Use
  Company Number: BR-AMGEN-BRASP2016067255

PATIENT
  Age: 62 Year
  Sex: Female
  Weight: 85 kg

DRUGS (6)
  1. AMITRIPTYLINE [Concomitant]
     Active Substance: AMITRIPTYLINE
     Indication: RELAXATION THERAPY
     Dosage: 1 TABLET 25 MG, AT NIGHT
  2. ENBREL [Suspect]
     Active Substance: ETANERCEPT
     Indication: RHEUMATOID ARTHRITIS
     Dosage: 50 MG, 1X/WEEK
     Route: 065
     Dates: start: 20160331
  3. LEFLUNOMIDE. [Concomitant]
     Active Substance: LEFLUNOMIDE
     Indication: RHEUMATOID ARTHRITIS
     Dosage: 1 TABLET 25 MG, PER DAY
  4. PREDNISONE. [Concomitant]
     Active Substance: PREDNISONE
     Indication: RHEUMATOID ARTHRITIS
     Dosage: 1 TABLET 5 MG, PER DAY
  5. FLUOXETINE [Concomitant]
     Active Substance: FLUOXETINE HYDROCHLORIDE
     Indication: ANTIDEPRESSANT THERAPY
     Dosage: 20 MG, UNK
  6. OMEPRAZOLE. [Concomitant]
     Active Substance: OMEPRAZOLE
     Indication: GASTRIC DISORDER
     Dosage: 20 MG, UNK

REACTIONS (9)
  - Lack of injection site rotation [Unknown]
  - Mass [Unknown]
  - Purulence [Unknown]
  - Wound [Not Recovered/Not Resolved]
  - Pruritus [Unknown]
  - Injection site pruritus [Unknown]
  - White blood cell count decreased [Not Recovered/Not Resolved]
  - Disease recurrence [Not Recovered/Not Resolved]
  - Disease recurrence [Unknown]

NARRATIVE: CASE EVENT DATE: 2016
